FAERS Safety Report 16317704 (Version 4)
Quarter: 2021Q1

REPORT INFORMATION
  Report Type: Other
  Country: ES (occurrence: ES)
  Receive Date: 20190516
  Receipt Date: 20210226
  Transmission Date: 20210419
  Serious: Yes (Hospitalization)
  Sender: FDA-Public Use
  Company Number: ES-ROCHE-2318603

PATIENT
  Age: 5 Decade
  Sex: Male

DRUGS (19)
  1. FORMOTEROL FUMARATE [Suspect]
     Active Substance: FORMOTEROL FUMARATE
     Indication: ASTHMA
     Dosage: 2 DF, BID (TWO PUFFS CONTAINING FORMOTEROL/FLUTICASONE PROPIONATE 320 MIGROG/9 MICROG)
     Route: 055
     Dates: start: 201608
  2. PREDNISONE. [Suspect]
     Active Substance: PREDNISONE
     Indication: ASTHMA
     Dosage: 10?30 MG, QD
     Route: 048
  3. FLUTICASONE;SALMETEROL [Suspect]
     Active Substance: FLUTICASONE PROPIONATE\SALMETEROL XINAFOATE
     Indication: ASTHMA
     Dosage: 2 DF, BID (TWO PUFFS CONTAINING SALMETEROL/FLUTICASONE PROPIONATE 22/250)
     Route: 055
     Dates: start: 201403
  4. FLUTICASONE PROPIONATE. [Suspect]
     Active Substance: FLUTICASONE PROPIONATE
     Indication: ASTHMA
     Route: 055
  5. TIOTROPIUM [Suspect]
     Active Substance: TIOTROPIUM
     Indication: ASTHMA
     Route: 065
     Dates: start: 201403
  6. MONTELUKAST SODIUM. [Suspect]
     Active Substance: MONTELUKAST SODIUM
     Indication: ASTHMA
  7. OMALIZUMAB. [Suspect]
     Active Substance: OMALIZUMAB
     Indication: ASTHMA
  8. PREDNISONE. [Suspect]
     Active Substance: PREDNISONE
     Dosage: 5?10 MG, QD
     Route: 048
     Dates: start: 201503
  9. FLUTICASONE. [Suspect]
     Active Substance: FLUTICASONE
     Indication: ASTHMA
     Dosage: 2 DF, BID (TWO PUFFS CONTAINING FORMOTEROL/FLUTICASONE PROPIONATE 320 MIGROG/9 MICROG)
     Route: 055
  10. FLUTICASONE. [Suspect]
     Active Substance: FLUTICASONE
     Indication: ASTHMA
  11. LEBRIKIZUMAB. [Suspect]
     Active Substance: LEBRIKIZUMAB
     Indication: ASTHMA
     Route: 065
     Dates: start: 201503, end: 201608
  12. FORMOTEROL FUMARATE [Suspect]
     Active Substance: FORMOTEROL FUMARATE
     Indication: ASTHMA
  13. TIOTROPIUM [Suspect]
     Active Substance: TIOTROPIUM
     Indication: ASTHMA
  14. PREDNISONE. [Suspect]
     Active Substance: PREDNISONE
     Indication: ASTHMA
     Route: 048
     Dates: start: 201403
  15. FLUTICASONE;SALMETEROL [Suspect]
     Active Substance: FLUTICASONE PROPIONATE\SALMETEROL XINAFOATE
     Indication: ASTHMA
  16. METRONIDAZOLE. [Concomitant]
     Active Substance: METRONIDAZOLE
     Indication: BLASTOCYSTIS INFECTION
     Route: 065
  17. OMALIZUMAB. [Suspect]
     Active Substance: OMALIZUMAB
     Indication: ASTHMA
     Route: 065
  18. PREDNISONE. [Suspect]
     Active Substance: PREDNISONE
     Dosage: 5?30 MG, QD
     Route: 048
     Dates: start: 201608
  19. MONTELUKAST SODIUM. [Suspect]
     Active Substance: MONTELUKAST SODIUM
     Indication: ASTHMA
     Route: 065
     Dates: start: 201403

REACTIONS (2)
  - Asthma [Unknown]
  - Treatment failure [Unknown]
